FAERS Safety Report 7532527-8 (Version None)
Quarter: 2011Q2

REPORT INFORMATION
  Report Type: 
  Country: None (occurrence: None)
  Receive Date: 20110608
  Receipt Date: 20110526
  Transmission Date: 20111010
  Serious: Yes (Other)
  Sender: FDA-Public Use
  Company Number: PHHY2011DE47141

PATIENT
  Sex: Female
  Weight: 82 kg

DRUGS (3)
  1. PAMIDRONATE DISODIUM [Concomitant]
     Dosage: 3 MG/ML, QMO
     Route: 042
     Dates: start: 20060613, end: 20071210
  2. TAMOXIFEN CITRATE [Concomitant]
     Indication: BREAST CANCER
     Dates: start: 20060501
  3. ZOMETA [Suspect]
     Indication: METASTASES TO BONE
     Dosage: 4 MG/5ML, EVERY 4 WEEKS
     Route: 042
     Dates: start: 20060601, end: 20071127

REACTIONS (3)
  - METASTASES TO BONE [None]
  - OSTEONECROSIS OF JAW [None]
  - METASTASES TO PLEURA [None]
